FAERS Safety Report 9347845 (Version 1)
Quarter: 2013Q2

REPORT INFORMATION
  Report Type: Spontaneous
  Country: US (occurrence: None)
  Receive Date: 20130612
  Receipt Date: 20130612
  Transmission Date: 20140414
  Serious: Yes (Hospitalization, Other)
  Sender: FDA-Public Use
  Company Number: None

PATIENT
  Age: 30 Year
  Sex: Male
  Weight: 162.84 kg

DRUGS (1)
  1. AZITHROMYCIN [Suspect]
     Indication: INFECTION
     Dosage: 1 TABLET DAILY ONCE 5 DAYS MORNING
     Dates: start: 20120406

REACTIONS (3)
  - Fatigue [None]
  - Gait disturbance [None]
  - Cardiac failure congestive [None]
